FAERS Safety Report 8570379-8 (Version None)
Quarter: 2012Q3

REPORT INFORMATION
  Report Type: 
  Country: None (occurrence: None)
  Receive Date: 20120803
  Receipt Date: 20120801
  Transmission Date: 20120928
  Serious: Yes (Disabling)
  Sender: FDA-Public Use
  Company Number: PHHY2012GB066339

PATIENT
  Age: 70 Year
  Sex: Female
  Weight: 70 kg

DRUGS (11)
  1. METOCLOPRAMIDE [Concomitant]
     Dosage: 10 MG, TID
     Dates: start: 20090303, end: 20120523
  2. RANITIDINE [Suspect]
     Indication: DYSPEPSIA
     Dosage: 150 MG, BID
     Route: 048
     Dates: start: 20110916, end: 20120530
  3. BISOPROLOL FUMARATE [Concomitant]
     Indication: CARDIAC DISORDER
     Dosage: 1.25 MG, QD
     Route: 048
     Dates: start: 20110401
  4. ROSUVASTATIN [Concomitant]
     Indication: CARDIAC DISORDER
     Dosage: 10 MG, QD
     Dates: start: 20110503
  5. FOLIC ACID [Concomitant]
     Dosage: 5 MG
     Route: 048
     Dates: start: 20080807
  6. ZAPAIN [Concomitant]
     Indication: PAIN
     Dosage: 2 DF
     Route: 048
     Dates: start: 20100628
  7. ASPIRIN [Concomitant]
     Indication: CARDIAC DISORDER
     Dosage: 75 MG
     Route: 048
     Dates: start: 20110225
  8. ADCAL-D3 [Concomitant]
     Indication: OSTEOPOROSIS
  9. CALCICHEW D3 [Concomitant]
     Indication: OSTEOPOROSIS
     Dates: start: 20090223
  10. RAMIPRIL [Concomitant]
     Indication: CARDIAC DISORDER
     Dosage: 1.25 MG
     Route: 048
     Dates: start: 20110401
  11. ALENDRONATE SODIUM [Concomitant]
     Indication: OSTEOPOROSIS
     Dosage: 70 MG, QW
     Route: 048
     Dates: start: 20090223

REACTIONS (3)
  - ANXIETY [None]
  - HALLUCINATION, VISUAL [None]
  - DEPRESSION [None]
